FAERS Safety Report 7281436-0 (Version None)
Quarter: 2011Q1

REPORT INFORMATION
  Report Type: 
  Country: None (occurrence: None)
  Receive Date: 20110208
  Receipt Date: 20101221
  Transmission Date: 20110831
  Serious: Yes (Death, Other)
  Sender: FDA-Public Use
  Company Number: FR-CELGENEUS-056-50794-11010156

PATIENT
  Age: 78 Year

DRUGS (1)
  1. VIDAZA [Suspect]
     Route: 050
     Dates: start: 20081001, end: 20100801

REACTIONS (2)
  - MYELODYSPLASTIC SYNDROME [None]
  - BLOOD PRODUCT TRANSFUSION DEPENDENT [None]
